FAERS Safety Report 4653730-0 (Version None)
Quarter: 2005Q2

REPORT INFORMATION
  Report Type: 
  Country: None (occurrence: None)
  Receive Date: 20050505
  Receipt Date: 20050426
  Transmission Date: 20051028
  Serious: Yes (Other)
  Sender: FDA-Public Use
  Company Number: CA-BRISTOL-MYERS SQUIBB COMPANY-12951208

PATIENT
  Age: 64 Year
  Sex: Female

DRUGS (4)
  1. HYDREA [Suspect]
     Indication: MYELOPROLIFERATIVE DISORDER
     Dosage: TX START: 10-DEC-2004
     Route: 048
     Dates: start: 20041224, end: 20041224
  2. CHLORDIAZEPOXIDE + CLIDINIUM [Concomitant]
     Dosage: TAKING ^FOR YEARS^
  3. CIPROFLOXACIN [Concomitant]
     Indication: URINARY TRACT INFECTION
     Dates: end: 20041101
  4. PERGOLIDE MESYLATE [Concomitant]
     Dosage: TAKING ^FOR YEARS^

REACTIONS (2)
  - MYALGIA [None]
  - NEUROPATHY PERIPHERAL [None]
